FAERS Safety Report 5084383-8 (Version None)
Quarter: 2006Q3

REPORT INFORMATION
  Report Type: 
  Country: None (occurrence: None)
  Receive Date: 20060817
  Receipt Date: 20060817
  Transmission Date: 20061208
  Serious: Yes (Hospitalization)
  Sender: FDA-Public Use
  Company Number: None

PATIENT
  Sex: Male
  Weight: 104.7809 kg

DRUGS (13)
  1. TAXOTERE [Suspect]
     Indication: PROSTATE CANCER
     Dosage: 60 MG DAYS 1,8,15 Q 28 D IV DRIP
     Route: 041
     Dates: start: 20060302, end: 20060427
  2. DOXIL [Suspect]
     Indication: PROSTATE CANCER
     Dosage: 60 MG DAY 1 Q 28 DAYS IV DRIP
     Route: 041
     Dates: start: 20060302, end: 20060427
  3. METROCLOPRAMIDE [Concomitant]
  4. ISOPRIL/HCTZ [Concomitant]
  5. NIFIDIAC [Concomitant]
  6. FUROSEMIDE [Concomitant]
  7. HYDROCORTISONE [Concomitant]
  8. VYTORIN [Concomitant]
  9. CENTRIUM SILVER [Concomitant]
  10. PROTONIX [Concomitant]
  11. N-INSULIN [Concomitant]
  12. R-INSULIN COMPAZINE [Concomitant]
  13. ZOFRAN [Concomitant]

REACTIONS (7)
  - BLOOD CREATININE INCREASED [None]
  - DIABETIC GASTROPARESIS [None]
  - DIABETIC KETOACIDOSIS [None]
  - DISEASE PROGRESSION [None]
  - MUSCULOSKELETAL PAIN [None]
  - NAUSEA [None]
  - VOMITING [None]
